APPROVED DRUG PRODUCT: DOXEPIN HYDROCHLORIDE
Active Ingredient: DOXEPIN HYDROCHLORIDE
Strength: EQ 25MG BASE
Dosage Form/Route: CAPSULE;ORAL
Application: A072109 | Product #001
Applicant: PUREPAC PHARMACEUTICAL CO
Approved: Dec 28, 1990 | RLD: No | RS: No | Type: DISCN